FAERS Safety Report 8457787 (Version 2)
Quarter: 2013Q2

REPORT INFORMATION
  Report Type: Spontaneous
  Country: US (occurrence: None)
  Receive Date: 20120227
  Receipt Date: 20120525
  Transmission Date: 20140414
  Serious: No
  Sender: FDA-Public Use
  Company Number: 343775

PATIENT
  Age: 70 Year
  Sex: Male

DRUGS (2)
  1. VICTOZA [Suspect]
     Indication: DIABETES MELLITUS
  2. GLIPIZIDE [Concomitant]

REACTIONS (1)
  - BLOOD GLUCOSE INCREASED [None]
